FAERS Safety Report 4822207-1 (Version None)
Quarter: 2005Q4

REPORT INFORMATION
  Report Type: 
  Country: None (occurrence: None)
  Receive Date: 20051103
  Receipt Date: 20051013
  Transmission Date: 20060501
  Serious: Yes (Hospitalization)
  Sender: FDA-Public Use
  Company Number: USA0510110822

PATIENT
  Age: 44 Year
  Sex: Female

DRUGS (3)
  1. CYMBALTA [Suspect]
     Indication: DEPRESSION
     Dosage: 60 MG
     Dates: start: 20051003, end: 20051001
  2. WELLBUTRIN [Concomitant]
  3. ULTRAM [Concomitant]

REACTIONS (2)
  - CONVULSION [None]
  - SUICIDE ATTEMPT [None]
